FAERS Safety Report 15433906 (Version 1)
Quarter: 2018Q3

REPORT INFORMATION
  Report Type: Spontaneous
  Country: US (occurrence: US)
  Receive Date: 20180927
  Receipt Date: 20180927
  Transmission Date: 20181010
  Serious: No
  Sender: FDA-Public Use
  Company Number: US-SA-2018SA266465

PATIENT
  Sex: Male

DRUGS (1)
  1. DUPIXENT [Suspect]
     Active Substance: DUPILUMAB
     Indication: DERMATITIS ATOPIC
     Dosage: 300 MG, QOW
     Route: 058
     Dates: start: 20180118

REACTIONS (5)
  - Scratch [Unknown]
  - Pigmentation disorder [Unknown]
  - Eye discharge [Unknown]
  - Drug dose omission [Unknown]
  - Skin exfoliation [Unknown]
